FAERS Safety Report 20832651 (Version 1)
Quarter: 2022Q2

REPORT INFORMATION
  Report Type: Spontaneous
  Country: None (occurrence: None)
  Receive Date: 20220516
  Receipt Date: 20220516
  Transmission Date: 20220721
  Serious: No
  Sender: FDA-Public Use
  Company Number: CA-ROCHE-2605204

PATIENT
  Weight: 99 kg

DRUGS (18)
  1. ACTEMRA [Suspect]
     Active Substance: TOCILIZUMAB
  2. ACTEMRA [Suspect]
     Active Substance: TOCILIZUMAB
  3. ALENDRONATE SODIUM [Suspect]
     Active Substance: ALENDRONATE SODIUM
  4. LIPITOR [Suspect]
     Active Substance: ATORVASTATIN CALCIUM
  5. PRAVASTATIN [Suspect]
     Active Substance: PRAVASTATIN
  6. COVID-19 VACCINE NOS [Suspect]
     Active Substance: COVID-19 VACCINE NOS
  7. ACETAMINOPHEN [Concomitant]
     Active Substance: ACETAMINOPHEN
  8. HYDROXYCHLOROQUINE SULFATE [Concomitant]
     Active Substance: HYDROXYCHLOROQUINE SULFATE
  9. IBUPROFEN [Concomitant]
     Active Substance: IBUPROFEN
  10. PAROXETINE [Concomitant]
     Active Substance: PAROXETINE
  11. PREDNISONE [Concomitant]
     Active Substance: PREDNISONE
  12. HYDROXYCHLOROQUINE SULFATE [Concomitant]
     Active Substance: HYDROXYCHLOROQUINE SULFATE
  13. SULFASALAZINE [Concomitant]
     Active Substance: SULFASALAZINE
  14. XANAX [Concomitant]
     Active Substance: ALPRAZOLAM
  15. TYLENOL ARTHRITIS PAIN [Concomitant]
     Active Substance: ACETAMINOPHEN
  16. ALPRAZOLAM [Concomitant]
     Active Substance: ALPRAZOLAM
  17. GLYBURIDE [Concomitant]
     Active Substance: GLYBURIDE
  18. TRIAMCINOLONE ACETONIDE [Concomitant]
     Active Substance: TRIAMCINOLONE ACETONIDE

REACTIONS (51)
  - Agitation [None]
  - Arthralgia [None]
  - Back pain [None]
  - Blood cholesterol increased [None]
  - Blood pressure increased [None]
  - Blood pressure systolic increased [None]
  - Cholelithiasis [None]
  - Chromaturia [None]
  - Diarrhoea [None]
  - Electrocardiogram abnormal [None]
  - Fall [None]
  - Fungal infection [None]
  - Gastric disorder [None]
  - Haemorrhoids [None]
  - Headache [None]
  - Heart rate decreased [None]
  - Heart rate increased [None]
  - Hepatic steatosis [None]
  - Hyperhidrosis [None]
  - Hypotension [None]
  - Influenza [None]
  - Infusion related reaction [None]
  - Injection site bruising [None]
  - Joint swelling [None]
  - Ligament sprain [None]
  - Malaise [None]
  - Muscular weakness [None]
  - Musculoskeletal pain [None]
  - Nasopharyngitis [None]
  - Osteoporosis [None]
  - Oxygen saturation decreased [None]
  - Pain [None]
  - Pain in extremity [None]
  - Peripheral swelling [None]
  - Poor dental condition [None]
  - Pruritus [None]
  - Rash [None]
  - Rheumatoid arthritis [None]
  - Therapeutic product effect decreased [None]
  - Vessel puncture site bruise [None]
  - Weight decreased [None]
  - Weight increased [None]
  - Blood pressure diastolic abnormal [None]
  - Mobility decreased [None]
  - Dizziness [None]
  - Bone disorder [None]
  - Nasal congestion [None]
  - Muscle strain [None]
  - Blood pressure systolic abnormal [None]
  - Tooth disorder [None]
  - Rib fracture [None]
